FAERS Safety Report 19076592 (Version 1)
Quarter: 2021Q1

REPORT INFORMATION
  Report Type: Other
  Country: US (occurrence: US)
  Receive Date: 20210331
  Receipt Date: 20210331
  Transmission Date: 20210420
  Serious: Yes (Hospitalization)
  Sender: FDA-Public Use
  Company Number: US-ROCHE-2792914

PATIENT
  Age: 67 Year
  Sex: Female

DRUGS (6)
  1. CARBAMAZEPINE. [Concomitant]
     Active Substance: CARBAMAZEPINE
  2. OCREVUS [Suspect]
     Active Substance: OCRELIZUMAB
     Indication: MULTIPLE SCLEROSIS
     Route: 065
     Dates: start: 20180530
  3. OCREVUS [Suspect]
     Active Substance: OCRELIZUMAB
     Indication: NEUROPATHY PERIPHERAL
     Dosage: NEXT INFUSION ON 13/DEC/2017.
     Route: 065
     Dates: start: 20171129
  4. OCREVUS [Suspect]
     Active Substance: OCRELIZUMAB
     Indication: GLAUCOMA
  5. GABAPENTIN. [Concomitant]
     Active Substance: GABAPENTIN
  6. TIMOLOL. [Concomitant]
     Active Substance: TIMOLOL

REACTIONS (1)
  - Urinary tract infection [Recovered/Resolved]

NARRATIVE: CASE EVENT DATE: 20210122
